FAERS Safety Report 6321110-8 (Version None)
Quarter: 2009Q3

REPORT INFORMATION
  Report Type: 
  Country: None (occurrence: None)
  Receive Date: 20090822
  Receipt Date: 20081230
  Transmission Date: 20100115
  Serious: No
  Sender: FDA-Public Use
  Company Number: US-ABBOTT-09P-163-0495600-00

PATIENT
  Sex: Male
  Weight: 72.64 kg

DRUGS (3)
  1. NIASPAN [Suspect]
     Indication: HIGH DENSITY LIPOPROTEIN DECREASED
     Route: 048
     Dates: start: 20081216, end: 20081230
  2. FELODOPINE [Concomitant]
     Indication: HYPERTENSION
  3. SYNTHROID [Concomitant]
     Indication: HYPOTHYROIDISM

REACTIONS (1)
  - BLOOD GLUCOSE INCREASED [None]
